FAERS Safety Report 18265257 (Version 1)
Quarter: 2020Q3

REPORT INFORMATION
  Report Type: Spontaneous
  Country: GB (occurrence: GB)
  Receive Date: 20200914
  Receipt Date: 20200914
  Transmission Date: 20201103
  Serious: Yes (Hospitalization, Other)
  Sender: FDA-Public Use
  Company Number: GB-SA-2018SA174154

PATIENT

DRUGS (44)
  1. VINORELBINE TARTRATE. [Suspect]
     Active Substance: VINORELBINE TARTRATE
     Indication: PRODUCT USED FOR UNKNOWN INDICATION
     Route: 065
  2. TRASTUZUMAB EMTANSINE [Suspect]
     Active Substance: ADO-TRASTUZUMAB EMTANSINE
     Dosage: 260 MG, Q3W
     Route: 042
     Dates: start: 20161102, end: 20161102
  3. PERTUZUMAB. [Suspect]
     Active Substance: PERTUZUMAB
     Dosage: 420 MG, Q3W
     Route: 042
     Dates: start: 20150515, end: 20150515
  4. AMOXICILLIN. [Concomitant]
     Active Substance: AMOXICILLIN
     Indication: LOWER RESPIRATORY TRACT INFECTION
     Dosage: UNK
     Route: 048
     Dates: start: 20160803, end: 20160812
  5. NAPROXEN. [Concomitant]
     Active Substance: NAPROXEN
     Dosage: 500 UNK
     Route: 048
     Dates: start: 201605, end: 201606
  6. LOPERAMIDE [Concomitant]
     Active Substance: LOPERAMIDE
     Indication: DIARRHOEA
     Dosage: 2 MG
     Route: 048
     Dates: start: 201507
  7. BEROCCA [ASCORBIC ACID;BIOTIN;CALCIUM CARBONATE;CALCIUM PANTOTHENATE;C [Concomitant]
     Dosage: 1 DF
     Route: 048
  8. TAZOCIN [Concomitant]
     Active Substance: PIPERACILLIN SODIUM\TAZOBACTAM SODIUM
     Indication: VASCULAR DEVICE INFECTION
     Dosage: 450 MG
     Route: 042
     Dates: start: 20160414, end: 20160414
  9. DIFFLAM [Concomitant]
     Active Substance: BENZYDAMINE HYDROCHLORIDE
     Indication: STOMATITIS
     Route: 048
     Dates: start: 20160803
  10. DOCETAXEL. [Suspect]
     Active Substance: DOCETAXEL
     Indication: BREAST CANCER METASTATIC
     Dosage: 140 MG, Q3W
     Route: 042
     Dates: start: 20150424, end: 20150424
  11. TRASTUZUMAB EMTANSINE [Suspect]
     Active Substance: ADO-TRASTUZUMAB EMTANSINE
     Indication: BREAST CANCER METASTATIC
     Dosage: 260 MG, Q3W
     Route: 042
     Dates: start: 20160404, end: 20160404
  12. FLUCLOXACILLIN [Concomitant]
     Active Substance: FLUCLOXACILLIN
     Dosage: 500 UNK
     Route: 048
     Dates: start: 20160818, end: 20160825
  13. TAXOTERE [Suspect]
     Active Substance: DOCETAXEL
     Indication: PRODUCT USED FOR UNKNOWN INDICATION
     Dosage: UNK
     Route: 065
  14. TRASTUZUMAB. [Suspect]
     Active Substance: TRASTUZUMAB
     Indication: BREAST CANCER METASTATIC
     Dosage: 619.5 MG
     Route: 041
     Dates: start: 20150423, end: 20150423
  15. TRASTUZUMAB. [Suspect]
     Active Substance: TRASTUZUMAB
     Dosage: 483 MG, Q3W
     Route: 042
     Dates: start: 20150515, end: 20150515
  16. TRASTUZUMAB. [Suspect]
     Active Substance: TRASTUZUMAB
     Dosage: 441 MG, Q3W
     Route: 042
     Dates: start: 20150808, end: 20150808
  17. DOCETAXEL. [Suspect]
     Active Substance: DOCETAXEL
     Dosage: 100 MG, Q3W
     Route: 042
     Dates: start: 20150826, end: 20150826
  18. TRASTUZUMAB. [Suspect]
     Active Substance: TRASTUZUMAB
     Dosage: 630 MG, Q3W
     Route: 042
     Dates: start: 20150710, end: 20150710
  19. PACLITAXEL. [Suspect]
     Active Substance: PACLITAXEL
     Indication: PRODUCT USED FOR UNKNOWN INDICATION
     Dosage: UNK
  20. PERTUZUMAB. [Suspect]
     Active Substance: PERTUZUMAB
     Dosage: 420 MG, Q3W
     Route: 042
     Dates: start: 20160309, end: 20160309
  21. GABAPENTIN. [Concomitant]
     Active Substance: GABAPENTIN
     Indication: NEUROPATHY PERIPHERAL
     Route: 048
     Dates: start: 201611
  22. FLUCLOXACILLIN [Concomitant]
     Active Substance: FLUCLOXACILLIN
     Indication: VASCULAR DEVICE INFECTION
     Route: 048
     Dates: start: 20160919, end: 20160922
  23. FLUCLOXACILLIN [Concomitant]
     Active Substance: FLUCLOXACILLIN
     Indication: CELLULITIS
     Dosage: 500 MG, QD
     Route: 048
     Dates: start: 20160919, end: 20180922
  24. NAPROXEN. [Concomitant]
     Active Substance: NAPROXEN
     Indication: PAIN IN EXTREMITY
     Dosage: 1000 MG, QD
     Route: 048
     Dates: start: 201605, end: 201606
  25. PYRIDOXINE [Concomitant]
     Active Substance: PYRIDOXINE
     Indication: NEUROPATHY PERIPHERAL
     Dosage: 50 MG
     Route: 048
     Dates: start: 201611
  26. FLUCONAZOLE. [Concomitant]
     Active Substance: FLUCONAZOLE
     Indication: STOMATITIS
     Dosage: 50 MG
     Route: 048
     Dates: start: 201507, end: 201507
  27. ADCAL D3 [Concomitant]
     Active Substance: CALCIUM CARBONATE\CHOLECALCIFEROL
     Dosage: 1 DF
     Route: 048
     Dates: start: 20150612
  28. AMITRIPTYLINE [AMITRIPTYLINE HYDROCHLORIDE] [Concomitant]
     Active Substance: AMITRIPTYLINE HYDROCHLORIDE
     Dosage: 30 MG
     Route: 048
     Dates: start: 201410
  29. DOCETAXEL. [Suspect]
     Active Substance: DOCETAXEL
     Dosage: 150 MG, Q3W
     Route: 042
     Dates: start: 20150515, end: 20150515
  30. DOCETAXEL. [Suspect]
     Active Substance: DOCETAXEL
     Dosage: 140 MG, Q3W
     Route: 042
     Dates: start: 20150605, end: 20150605
  31. TRASTUZUMAB EMTANSINE [Suspect]
     Active Substance: ADO-TRASTUZUMAB EMTANSINE
     Dosage: 180 MG, Q3W
     Route: 042
     Dates: start: 20170208, end: 20170208
  32. PERTUZUMAB. [Suspect]
     Active Substance: PERTUZUMAB
     Indication: BREAST CANCER METASTATIC
     Dosage: 840 MG, QD
     Route: 042
     Dates: start: 20150423, end: 20150423
  33. ABRAXANE [Suspect]
     Active Substance: PACLITAXEL
     Indication: PRODUCT USED FOR UNKNOWN INDICATION
     Dosage: UNK
  34. FLUCLOXACILLIN [Concomitant]
     Active Substance: FLUCLOXACILLIN
     Dosage: 1 G, QD
     Route: 048
     Dates: start: 20160923, end: 20160929
  35. GELCLAIR [ENOXOLONE;HYALURONATE SODIUM;POVIDONE] [Concomitant]
     Indication: STOMATITIS
     Dosage: 40 ML
     Route: 048
     Dates: start: 201507, end: 201507
  36. DENOSUMAB [Concomitant]
     Active Substance: DENOSUMAB
     Dosage: 120 MG, Q3W
     Route: 058
     Dates: start: 20150515, end: 20150515
  37. DENOSUMAB [Concomitant]
     Active Substance: DENOSUMAB
     Dosage: 120 MG, Q6W
     Route: 058
     Dates: start: 20160518, end: 20160518
  38. DOCETAXEL. [Suspect]
     Active Substance: DOCETAXEL
     Dosage: 100 MG, Q3W
     Route: 042
     Dates: start: 20150710, end: 20150710
  39. TRASTUZUMAB. [Suspect]
     Active Substance: TRASTUZUMAB
     Dosage: 483 MG, Q3W
     Route: 042
     Dates: start: 20150605, end: 20150605
  40. TRASTUZUMAB. [Suspect]
     Active Substance: TRASTUZUMAB
     Dosage: 441 MG, Q3W
     Route: 042
     Dates: start: 20160127, end: 20160127
  41. DENOSUMAB [Concomitant]
     Active Substance: DENOSUMAB
     Dosage: 120 MG, Q6W
     Route: 058
     Dates: start: 20180907, end: 20180907
  42. TRASTUZUMAB EMTANSINE [Suspect]
     Active Substance: ADO-TRASTUZUMAB EMTANSINE
     Dosage: 180 MG, Q3W
     Route: 042
     Dates: start: 20170705, end: 20170705
  43. HALAVEN [Suspect]
     Active Substance: ERIBULIN MESYLATE
     Indication: PRODUCT USED FOR UNKNOWN INDICATION
     Dosage: UNK
     Route: 065
  44. CO?AMOXICLAVE [Concomitant]
     Active Substance: AMOXICILLIN\CLAVULANATE POTASSIUM
     Indication: VASCULAR DEVICE INFECTION
     Route: 048
     Dates: start: 20160414, end: 20160420

REACTIONS (30)
  - Vascular device infection [Recovered/Resolved]
  - Pneumonia [Recovered/Resolved]
  - Back pain [Recovered/Resolved]
  - Nausea [Unknown]
  - Fungal infection [Recovered/Resolved]
  - Cellulitis [Recovered/Resolved]
  - Gastrooesophageal reflux disease [Recovered/Resolved]
  - Fatigue [Recovered/Resolved]
  - Lower respiratory tract infection [Recovered/Resolved]
  - Constipation [Recovered/Resolved]
  - Pain [Recovered/Resolved]
  - Alopecia [Recovered/Resolved]
  - Pain in extremity [Recovered/Resolved]
  - Pyrexia [Not Recovered/Not Resolved]
  - Neuropathy peripheral [Recovering/Resolving]
  - Headache [Recovered/Resolved]
  - Pain [Unknown]
  - Peripheral sensory neuropathy [Not Recovered/Not Resolved]
  - Dyspnoea [Recovering/Resolving]
  - Fatigue [Recovering/Resolving]
  - Decreased appetite [Recovered/Resolved]
  - Diarrhoea [Recovered/Resolved]
  - Palmar-plantar erythrodysaesthesia syndrome [Unknown]
  - Palmar-plantar erythrodysaesthesia syndrome [Recovered/Resolved]
  - Stomatitis [Not Recovered/Not Resolved]
  - Cellulitis [Recovered/Resolved]
  - Stomatitis [Recovered/Resolved]
  - Nasopharyngitis [Recovered/Resolved]
  - Decreased appetite [Recovering/Resolving]
  - Diarrhoea [Recovering/Resolving]

NARRATIVE: CASE EVENT DATE: 20150615
